FAERS Safety Report 6190268-6 (Version None)
Quarter: 2009Q2

REPORT INFORMATION
  Report Type: 
  Country: None (occurrence: None)
  Receive Date: 20090513
  Receipt Date: 20090513
  Transmission Date: 20091009
  Serious: Yes (Life-Threatening, Hospitalization, Disabling, Other)
  Sender: FDA-Public Use
  Company Number: None

PATIENT
  Age: 80 Year
  Sex: Female
  Weight: 52.1637 kg

DRUGS (4)
  1. AMITRIPTYLINE HCL [Suspect]
     Dosage: 25 MG 2X DAILY PO
     Route: 048
     Dates: start: 19760101
  2. PERPHENAZINE 2/AMITRIPTYLINE 25 [Suspect]
     Dosage: 25 MG-2 1X DAILY PO
     Route: 048
     Dates: start: 19760101
  3. GENERAL ANESTHESIA [Concomitant]
  4. NARCOTIC PAIN RELIEF [Concomitant]

REACTIONS (5)
  - APPENDICITIS PERFORATED [None]
  - DELAYED RECOVERY FROM ANAESTHESIA [None]
  - PARANOIA [None]
  - PROCEDURAL PAIN [None]
  - RESPIRATORY RATE DECREASED [None]
